FAERS Safety Report 12240581 (Version 3)
Quarter: 2016Q3

REPORT INFORMATION
  Report Type: Report from Study
  Country: US (occurrence: US)
  Receive Date: 20160405
  Receipt Date: 20160712
  Transmission Date: 20161109
  Serious: No
  Sender: FDA-Public Use
  Company Number: US-AMGEN-USASL2016040247

PATIENT
  Age: 17 Year
  Sex: Female

DRUGS (3)
  1. ENBREL [Suspect]
     Active Substance: ETANERCEPT
     Indication: PSORIASIS
     Dosage: UNK
     Route: 065
  2. ENBREL [Suspect]
     Active Substance: ETANERCEPT
     Dosage: UNK
     Route: 065
  3. ENBREL [Suspect]
     Active Substance: ETANERCEPT
     Indication: PSORIATIC ARTHROPATHY
     Dosage: 25 MG, ONCE WEEKLY
     Route: 065
     Dates: start: 20160205

REACTIONS (7)
  - Cough [Unknown]
  - Off label use [Unknown]
  - Diarrhoea [Unknown]
  - Pyrexia [Unknown]
  - Erythema [Unknown]
  - Arthralgia [Unknown]
  - Nasal dryness [Unknown]

NARRATIVE: CASE EVENT DATE: 2016
